FAERS Safety Report 9297885 (Version 5)
Quarter: 2013Q3

REPORT INFORMATION
  Report Type: Spontaneous
  Country: JP (occurrence: JP)
  Receive Date: 20130520
  Receipt Date: 20130808
  Transmission Date: 20140515
  Serious: Yes (Life-Threatening, Other)
  Sender: FDA-Public Use
  Company Number: JP-OTSUKA-JP-2013-11475

PATIENT
  Age: 95 Year
  Sex: Male

DRUGS (6)
  1. SAMSCA [Suspect]
     Indication: CARDIAC FAILURE
     Dosage: 7.5 MG MILLIGRAM(S), QD
     Route: 048
     Dates: start: 20130501, end: 20130506
  2. TRAMCET [Concomitant]
     Indication: FRACTURE PAIN
     Dosage: UNK, QD
     Route: 048
     Dates: start: 20130402, end: 20130507
  3. ALDACTONE A [Concomitant]
     Indication: CARDIAC FAILURE CHRONIC
     Dosage: 12.5 MG MILLIGRAM(S), QD
     Route: 048
     Dates: end: 20130507
  4. TANATRIL [Concomitant]
     Indication: CARDIAC FAILURE CHRONIC
     Dosage: 5 MG MILLIGRAM(S), QD
     Route: 048
     Dates: end: 20130507
  5. REMINYL [Concomitant]
     Indication: DEMENTIA
     Dosage: 4 MG MILLIGRAM(S), BID
     Route: 048
     Dates: end: 20130507
  6. NOVAMIN [Concomitant]
     Indication: FRACTURE PAIN
     Dosage: 5 MG MILLIGRAM(S), QD
     Route: 048

REACTIONS (3)
  - Depressed level of consciousness [Unknown]
  - Pneumonia aspiration [Unknown]
  - Hypernatraemia [Recovering/Resolving]
